FAERS Safety Report 7508727-X (Version None)
Quarter: 2011Q2

REPORT INFORMATION
  Report Type: 
  Country: None (occurrence: None)
  Receive Date: 20110527
  Receipt Date: 20101008
  Transmission Date: 20111010
  Serious: No
  Sender: FDA-Public Use
  Company Number: A0885655A

PATIENT
  Age: 68 Year
  Sex: Female

DRUGS (5)
  1. VENTOLIN [Suspect]
     Dosage: 2PUFF THREE TIMES PER DAY
     Route: 055
     Dates: start: 20100801, end: 20100801
  2. LEVOXYL [Concomitant]
  3. BENICAR HCT [Concomitant]
  4. VITAMIN D [Concomitant]
  5. ATENOLOL [Concomitant]

REACTIONS (3)
  - HEART RATE INCREASED [None]
  - TREMOR [None]
  - PALPITATIONS [None]
